FAERS Safety Report 9963789 (Version 1)
Quarter: 2014Q1

REPORT INFORMATION
  Report Type: Spontaneous
  Country: US (occurrence: US)
  Receive Date: 20140305
  Receipt Date: 20140305
  Transmission Date: 20141002
  Serious: No
  Sender: FDA-Public Use
  Company Number: US-ABBVIE-13P-163-1117078-00

PATIENT
  Age: 56 Year
  Sex: Male
  Weight: 87.17 kg

DRUGS (3)
  1. HUMIRA [Suspect]
     Indication: RHEUMATOID ARTHRITIS
     Dates: end: 20130609
  2. PREDNISONE [Concomitant]
     Indication: RHEUMATOID ARTHRITIS
  3. ASPIRIN [Concomitant]
     Indication: HEADACHE

REACTIONS (4)
  - Blood blister [Not Recovered/Not Resolved]
  - Dizziness [Recovered/Resolved]
  - Tension headache [Not Recovered/Not Resolved]
  - Calcinosis [Not Recovered/Not Resolved]
